FAERS Safety Report 6795188-1 (Version None)
Quarter: 2010Q2

REPORT INFORMATION
  Report Type: 
  Country: None (occurrence: None)
  Receive Date: 20100625
  Receipt Date: 20100621
  Transmission Date: 20101027
  Serious: Yes (Hospitalization)
  Sender: FDA-Public Use
  Company Number: DE-ROCHE-711067

PATIENT
  Sex: Female
  Weight: 55 kg

DRUGS (5)
  1. BEVACIZUMAB [Suspect]
     Indication: BREAST CANCER
     Dosage: LAST DOSE PRIOR TO SAE 11 JUNE 2010, 6 CYCLE,FORM REPORTED AS IV
     Route: 065
     Dates: start: 20100219
  2. EPIRUBICIN [Suspect]
     Indication: BREAST CANCER
     Dosage: 4 CYCLE , LAST DOSE PRIOR TO SAE 23 APRIL 2010,FORM REPORTED AS IV
     Route: 065
     Dates: start: 20100219
  3. CYCLOPHOSPHAMIDE [Suspect]
     Indication: BREAST CANCER
     Dosage: LAST DOSE PRIOR TO SAE 23 APRIL 2010
     Route: 042
     Dates: start: 20100219
  4. DOCETAXEL [Suspect]
     Indication: BREAST CANCER
     Dosage: LAST DOSE PRIOR TO SAE 11 JUNE 2010, 2 CYCLE,FORM :IV
     Route: 042
     Dates: start: 20100514
  5. DEXAMETHASONE [Concomitant]
     Dates: start: 20100610, end: 20100613

REACTIONS (1)
  - GENERAL PHYSICAL HEALTH DETERIORATION [None]
